FAERS Safety Report 7239899-2 (Version None)
Quarter: 2011Q1

REPORT INFORMATION
  Report Type: 
  Country: None (occurrence: None)
  Receive Date: 20110123
  Receipt Date: 20091221
  Transmission Date: 20110831
  Serious: No
  Sender: FDA-Public Use
  Company Number: US-MYLANLABS-2009S1012328

PATIENT
  Age: 67 Year
  Sex: Male
  Weight: 65.77 kg

DRUGS (14)
  1. ZOMETA [Concomitant]
     Indication: BONE NEOPLASM MALIGNANT
     Dosage: MONTHLY--EVERY 28 DAYS
     Route: 042
  2. LISINOPRIL [Concomitant]
     Indication: BLOOD PRESSURE INCREASED
     Route: 048
  3. ASPIRIN [Concomitant]
     Route: 048
  4. MULTI-VITAMINS [Concomitant]
     Dosage: ONE TABLET
  5. KETOCONAZOLE [Suspect]
     Indication: PROSTATIC SPECIFIC ANTIGEN INCREASED
     Route: 048
     Dates: start: 20090501
  6. MAGNESIUM [Concomitant]
     Route: 048
  7. KETOCONAZOLE [Suspect]
     Indication: PROSTATE CANCER
     Route: 048
     Dates: start: 20090501
  8. CORTIZOL [Concomitant]
     Indication: PROSTATIC SPECIFIC ANTIGEN INCREASED
     Route: 048
  9. CALCIUM +VIT D [Concomitant]
     Route: 048
  10. LUPRON [Concomitant]
     Indication: NEOPLASM MALIGNANT
     Dosage: EVERY 3 MONTHS
     Route: 030
  11. XYZAL [Concomitant]
     Indication: HYPERSENSITIVITY
     Route: 048
  12. NAFTIN [Concomitant]
     Indication: TINEA PEDIS
     Route: 061
  13. VITAMIN D [Concomitant]
     Route: 048
  14. SIMVASTATIN [Suspect]
     Indication: BLOOD CHOLESTEROL INCREASED
     Route: 048

REACTIONS (3)
  - DRUG INEFFECTIVE FOR UNAPPROVED INDICATION [None]
  - DRUG INTERACTION [None]
  - PROSTATIC SPECIFIC ANTIGEN INCREASED [None]
